FAERS Safety Report 6164389-8 (Version None)
Quarter: 2009Q2

REPORT INFORMATION
  Report Type: 
  Country: None (occurrence: None)
  Receive Date: 20090421
  Receipt Date: 20090407
  Transmission Date: 20091009
  Serious: Yes (Hospitalization)
  Sender: FDA-Public Use
  Company Number: 2009000828

PATIENT
  Age: 65 Year
  Sex: Male
  Weight: 63 kg

DRUGS (6)
  1. ERLOTINIB (ERLOTINIB) (TABLET) (ERLOTINIB) [Suspect]
     Indication: OESOPHAGEAL CARCINOMA
     Dosage: 100 MG, QD, ORAL
     Route: 048
     Dates: start: 20090210, end: 20090320
  2. BEVACIZUMAB (INJECTION FOR INFUSION) [Suspect]
     Indication: OESOPHAGEAL CARCINOMA
     Dosage: 2190 MG, DAYS 1 + 22, INTRAVENOUS
     Route: 042
     Dates: start: 20090210, end: 20090320
  3. TAXOL [Suspect]
     Indication: OESOPHAGEAL CARCINOMA
     Dosage: 200 MG/M2, INTRAVENOUS
     Route: 042
     Dates: start: 20090210, end: 20090320
  4. CARBOPLATIN [Suspect]
     Indication: OESOPHAGEAL CARCINOMA
     Dosage: 5 AUC; DAY 1 + 22, INTRAVENOUS
     Route: 042
     Dates: start: 20090210, end: 20090320
  5. 5-FU (FLUOROURACIL) (INJECTIO0N FOR INFUSION) [Suspect]
     Indication: OESOPHAGEAL CARCINOMA
     Dosage: 1575 MG/M2, INTRAVENOUS
     Route: 042
     Dates: start: 20090210, end: 20090320
  6. COMPAZINE [Concomitant]

REACTIONS (8)
  - DEHYDRATION [None]
  - DYSPHAGIA [None]
  - HYPOPHAGIA [None]
  - MALNUTRITION [None]
  - MUCOSAL INFLAMMATION [None]
  - NAUSEA [None]
  - WEIGHT DECREASED [None]
  - WHITE BLOOD CELL COUNT DECREASED [None]
